FAERS Safety Report 8353993-4 (Version None)
Quarter: 2012Q2

REPORT INFORMATION
  Report Type: 
  Country: None (occurrence: None)
  Receive Date: 20120511
  Receipt Date: 20120504
  Transmission Date: 20120825
  Serious: Yes (Hospitalization)
  Sender: FDA-Public Use
  Company Number: US-ASTRAZENECA-2012SE28994

PATIENT
  Sex: Male

DRUGS (1)
  1. BRILINTA [Suspect]
     Dosage: TWO TIMES A DAY
     Route: 048

REACTIONS (5)
  - HAEMORRHOIDS [None]
  - THROMBOSIS [None]
  - HAEMATOCRIT DECREASED [None]
  - MALAISE [None]
  - HAEMORRHAGE [None]
